FAERS Safety Report 4435352-X (Version None)
Quarter: 2004Q3

REPORT INFORMATION
  Report Type: 
  Country: None (occurrence: None)
  Receive Date: 20040827
  Receipt Date: 20040827
  Transmission Date: 20050211
  Serious: Yes (Other)
  Sender: FDA-Public Use
  Company Number: None

PATIENT
  Sex: Male
  Weight: 84.1 kg

DRUGS (17)
  1. GATIFLOXACIN [Suspect]
     Indication: URINARY TRACT INFECTION
     Dosage: 400 MG QD ORAL
     Route: 048
     Dates: start: 20040804, end: 20040817
  2. ACETAMINOPHEN300MG/CODEINE 30MG [Concomitant]
  3. ALBUTEROL [Concomitant]
  4. ASPIRIN [Concomitant]
  5. BISACODYL [Concomitant]
  6. CARVEDILOL [Concomitant]
  7. CYANOCOBALAMIN [Concomitant]
  8. DOCUSATE NA [Concomitant]
  9. FLUNISOLIDE [Concomitant]
  10. FOSINOPRIL SODIUM [Concomitant]
  11. GLIMEPIRIDE [Concomitant]
  12. METOCLOPRAMIDE HCL [Concomitant]
  13. MIRTAZAPINE [Concomitant]
  14. OMEPRAZOLE [Concomitant]
  15. SIMVASTATIN [Concomitant]
  16. SPIRONOLACTONE [Concomitant]
  17. GATIFLOXACIN [Concomitant]

REACTIONS (3)
  - COMA [None]
  - DIABETES MELLITUS INADEQUATE CONTROL [None]
  - GASTRIC DISORDER [None]
